FAERS Safety Report 22130448 (Version 1)
Quarter: 2023Q1

REPORT INFORMATION
  Report Type: Spontaneous
  Country: FR (occurrence: FR)
  Receive Date: 20230323
  Receipt Date: 20230323
  Transmission Date: 20230418
  Serious: Yes (Other)
  Sender: FDA-Public Use
  Company Number: None

PATIENT
  Age: 73 Year
  Sex: Female
  Weight: 46 kg

DRUGS (1)
  1. VORICONAZOLE [Suspect]
     Active Substance: VORICONAZOLE
     Indication: Aspergillus infection
     Dosage: 800 MG, 1X/DAY
     Route: 048
     Dates: start: 20230309, end: 20230312

REACTIONS (2)
  - Hallucination, visual [Unknown]
  - Vision blurred [Unknown]

NARRATIVE: CASE EVENT DATE: 20230311
